FAERS Safety Report 5381077-6 (Version None)
Quarter: 2007Q3

REPORT INFORMATION
  Report Type: 
  Country: None (occurrence: None)
  Receive Date: 20070706
  Receipt Date: 20070627
  Transmission Date: 20080115
  Serious: Yes (Other)
  Sender: FDA-Public Use
  Company Number: US-PFIZER INC-2006113538

PATIENT
  Age: 65 Year
  Sex: Male
  Weight: 108.9 kg

DRUGS (3)
  1. LYRICA [Suspect]
     Indication: NERVE INJURY
     Dates: start: 20060601, end: 20060101
  2. NEURONTIN [Suspect]
     Indication: NERVE INJURY
  3. ARTHROTEC [Concomitant]

REACTIONS (7)
  - BLINDNESS [None]
  - DERMATITIS BULLOUS [None]
  - DISTURBANCE IN ATTENTION [None]
  - OCULOGYRIC CRISIS [None]
  - PAIN [None]
  - PARAESTHESIA [None]
  - VISION BLURRED [None]
